FAERS Safety Report 21157302 (Version 3)
Quarter: 2022Q3

REPORT INFORMATION
  Report Type: Report from Study
  Country: AU (occurrence: AU)
  Receive Date: 20220801
  Receipt Date: 20220819
  Transmission Date: 20221026
  Serious: Yes (Other)
  Sender: FDA-Public Use
  Company Number: AU-TAKEDA-2022TUS050514

PATIENT
  Age: 56 Year
  Sex: Female

DRUGS (1)
  1. HUMAN IMMUNOGLOBULIN G [Suspect]
     Active Substance: HUMAN IMMUNOGLOBULIN G
     Indication: Hypogammaglobulinaemia
     Dosage: 8 MILLIGRAM, 1/WEEK
     Route: 058
     Dates: start: 20220725

REACTIONS (5)
  - Cerebral haemorrhage [Unknown]
  - Headache [Unknown]
  - Vomiting [Unknown]
  - Muscle disorder [Recovering/Resolving]
  - Fistula [Recovering/Resolving]

NARRATIVE: CASE EVENT DATE: 20220802
